FAERS Safety Report 6161773-3 (Version None)
Quarter: 2009Q2

REPORT INFORMATION
  Report Type: 
  Country: None (occurrence: None)
  Receive Date: 20090417
  Receipt Date: 20090417
  Transmission Date: 20091009
  Serious: Yes (Hospitalization)
  Sender: FDA-Public Use
  Company Number: None

PATIENT
  Age: 41 Year
  Sex: Female
  Weight: 67.586 kg

DRUGS (1)
  1. VENOFER [Suspect]
     Indication: IRON DEFICIENCY ANAEMIA
     Dosage: 333 MG WEEKLY IV, OVER 1 HOUR
     Route: 042
     Dates: start: 20090415, end: 20090415

REACTIONS (8)
  - AGITATION [None]
  - APNOEA [None]
  - CHEST DISCOMFORT [None]
  - DYSKINESIA [None]
  - NAUSEA [None]
  - OEDEMA PERIPHERAL [None]
  - UNRESPONSIVE TO STIMULI [None]
  - URTICARIA [None]
